FAERS Safety Report 13115629 (Version 2)
Quarter: 2017Q1

REPORT INFORMATION
  Report Type: Spontaneous
  Country: MX (occurrence: MX)
  Receive Date: 20170114
  Receipt Date: 20170119
  Transmission Date: 20170428
  Serious: Yes (Other)
  Sender: FDA-Public Use
  Company Number: MX-AMGEN-MEXSP2017004582

PATIENT
  Age: 15 Year
  Sex: Male
  Weight: 70 kg

DRUGS (6)
  1. CYTARABINE. [Concomitant]
     Active Substance: CYTARABINE
     Indication: CYTOREDUCTIVE SURGERY
     Dosage: 100 MG, QD
     Dates: start: 20170109
  2. BLINCYTO [Suspect]
     Active Substance: BLINATUMOMAB
     Dosage: 28 MCG, QD
     Route: 042
     Dates: start: 20161230
  3. VORICONAZOLE. [Concomitant]
     Active Substance: VORICONAZOLE
     Indication: ANTIFUNGAL PROPHYLAXIS
     Dosage: 200 MG, BID
     Dates: start: 20161227
  4. OMEPRAZOLE. [Concomitant]
     Active Substance: OMEPRAZOLE
     Indication: GASTRITIS
     Dosage: 400 MG, QD
     Dates: start: 20161227
  5. BLINCYTO [Suspect]
     Active Substance: BLINATUMOMAB
     Indication: LYMPHOCYTIC LEUKAEMIA
     Dosage: 9 MCG, QD
     Route: 042
     Dates: start: 20161227
  6. HYDROXYUREA. [Concomitant]
     Active Substance: HYDROXYUREA
     Indication: CYTOREDUCTIVE SURGERY
     Dosage: 1 G, BID
     Dates: start: 20170107

REACTIONS (1)
  - Cytokine release syndrome [Unknown]

NARRATIVE: CASE EVENT DATE: 201612
